FAERS Safety Report 25378467 (Version 1)
Quarter: 2025Q2

REPORT INFORMATION
  Report Type: Report from Study
  Country: US (occurrence: US)
  Receive Date: 20250530
  Receipt Date: 20250530
  Transmission Date: 20250717
  Serious: Yes (Hospitalization)
  Sender: RECORDATI
  Company Number: US-ORPHANEU-2025003716

PATIENT
  Sex: Male
  Weight: 63.088 kg

DRUGS (14)
  1. CYSTADANE [Suspect]
     Active Substance: BETAINE
     Indication: Vitamin B complex deficiency
     Dosage: 3 GRAM, TID, POWDER
     Route: 048
     Dates: end: 202505
  2. CYSTADANE [Suspect]
     Active Substance: BETAINE
     Dosage: 3 GRAM, BID, POWDER (ONEDOSE MISSED)
     Route: 048
     Dates: start: 202505, end: 202505
  3. CYSTADANE [Suspect]
     Active Substance: BETAINE
     Dosage: 3 GRAM, TID, POWDER
     Route: 048
     Dates: start: 202505
  4. CHILDRENS TYLENOL [Concomitant]
     Active Substance: ACETAMINOPHEN
     Indication: Product used for unknown indication
     Route: 048
     Dates: start: 20230101
  5. Tukol [Concomitant]
     Indication: Product used for unknown indication
     Route: 048
     Dates: start: 20240101
  6. ONFI [Concomitant]
     Active Substance: CLOBAZAM
     Indication: Product used for unknown indication
     Dosage: 13 MILLILITER (TDD), BID (SUSPENSION 2.5 MG/ML)
     Route: 048
     Dates: start: 20230227
  7. KEPPRA [Concomitant]
     Active Substance: LEVETIRACETAM
     Indication: Product used for unknown indication
     Dosage: 18 MILLILITER, BID, SOLUTION 100 MG/ML
     Route: 048
     Dates: start: 20240101
  8. HYDROXOCOBALAMIN ACETATE [Concomitant]
     Active Substance: HYDROXOCOBALAMIN ACETATE
     Indication: Product used for unknown indication
     Dosage: 20 MG, QD
     Route: 030
     Dates: start: 20200101, end: 20250521
  9. HYDROXOCOBALAMIN ACETATE [Concomitant]
     Active Substance: HYDROXOCOBALAMIN ACETATE
     Dosage: 1 MILLILITER, QD
     Route: 030
     Dates: start: 20250522
  10. FOLIC ACID [Concomitant]
     Active Substance: FOLIC ACID
     Indication: Product used for unknown indication
     Dosage: 1 MG, QD, TABLET
     Route: 048
     Dates: start: 20200101
  11. FLONASE ALLERGY RELIEF [Concomitant]
     Active Substance: FLUTICASONE PROPIONATE
     Indication: Product used for unknown indication
     Dosage: 2 SP EN PRN, QD, NASAL SUSPENSION
     Route: 045
     Dates: start: 20230101
  12. FERROUS SULFATE [Concomitant]
     Active Substance: FERROUS SULFATE
     Indication: Product used for unknown indication
     Dosage: 5 MILLILITER, QD, ORAL SOLUTION
     Route: 048
     Dates: start: 20240101
  13. CARNITOR [Concomitant]
     Active Substance: LEVOCARNITINE
     Indication: Product used for unknown indication
     Dosage: 330 MG, QD, TABLET
     Route: 048
     Dates: start: 20210101
  14. ASPIRIN [Concomitant]
     Active Substance: ASPIRIN
     Indication: Product used for unknown indication
     Dosage: 81 MG, QD, CHEWABLE TABLET 81
     Route: 048
     Dates: start: 20230731

REACTIONS (2)
  - Pyrexia [Unknown]
  - Off label use [Recovered/Resolved]
